FAERS Safety Report 16945295 (Version 1)
Quarter: 2019Q4

REPORT INFORMATION
  Report Type: Spontaneous
  Country: US (occurrence: US)
  Receive Date: 20191021
  Receipt Date: 20191021
  Transmission Date: 20200122
  Serious: Yes (Other)
  Sender: FDA-Public Use
  Company Number: None

PATIENT
  Age: 82 Year
  Sex: Female
  Weight: 65.25 kg

DRUGS (2)
  1. KISQALI [Concomitant]
     Active Substance: RIBOCICLIB
     Dates: start: 20190920
  2. KISQALI [Suspect]
     Active Substance: RIBOCICLIB
     Indication: BREAST CANCER
     Dates: start: 20190910

REACTIONS (3)
  - Pharyngeal swelling [None]
  - Erythema [None]
  - Skin burning sensation [None]

NARRATIVE: CASE EVENT DATE: 20191007
